FAERS Safety Report 10072306 (Version 2)
Quarter: 2014Q2

REPORT INFORMATION
  Report Type: Spontaneous
  Country: US (occurrence: US)
  Receive Date: 20140411
  Receipt Date: 20140501
  Transmission Date: 20141212
  Serious: Yes (Other)
  Sender: FDA-Public Use
  Company Number: US-009507513-1404USA002135

PATIENT
  Age: 54 Year
  Sex: Male

DRUGS (1)
  1. SINEMET [Suspect]
     Dosage: UNK
     Route: 048

REACTIONS (3)
  - Deep brain stimulation [Unknown]
  - Drug tolerance [Unknown]
  - On and off phenomenon [Recovering/Resolving]
